FAERS Safety Report 9409876 (Version 1)
Quarter: 2013Q3

REPORT INFORMATION
  Report Type: Report from Study
  Country: DE (occurrence: DE)
  Receive Date: 20130719
  Receipt Date: 20130719
  Transmission Date: 20140515
  Serious: Yes (Hospitalization)
  Sender: FDA-Public Use
  Company Number: DE-ABBOTT-13P-062-1118251-00

PATIENT
  Age: 68 Year
  Sex: Female
  Weight: 62 kg

DRUGS (7)
  1. HUMIRA [Suspect]
     Indication: PSORIASIS
     Route: 058
     Dates: start: 20021204
  2. ATARAX [Concomitant]
  3. TRIAMCINOLONACETONID + ACID.SALICYL. SOLUTION [Concomitant]
     Indication: PSORIASIS
     Route: 061
  4. CLOBETASOL-17-PROPIONAT + ACID. SALICYL [Concomitant]
     Indication: PSORIASIS
     Route: 061
  5. TRIAMCINOLONACETONID + LOTIO ZINCI [Concomitant]
     Indication: PSORIASIS
     Route: 061
  6. NASONEX [Concomitant]
  7. FEXOFENADINE [Concomitant]

REACTIONS (1)
  - Prurigo [Not Recovered/Not Resolved]
